FAERS Safety Report 9426562 (Version 1)
Quarter: 2013Q3

REPORT INFORMATION
  Report Type: Spontaneous
  Country: US (occurrence: US)
  Receive Date: 20130730
  Receipt Date: 20130730
  Transmission Date: 20140515
  Serious: No
  Sender: FDA-Public Use
  Company Number: US-PFIZER INC-2013221141

PATIENT
  Age: 41 Year
  Sex: Male
  Weight: 113 kg

DRUGS (3)
  1. LYRICA [Suspect]
     Indication: NEUROPATHY PERIPHERAL
     Dosage: 75 MG, 2X/DAY
     Dates: start: 201306, end: 20130727
  2. LYRICA [Suspect]
     Indication: HYPOAESTHESIA
  3. LANTUS [Concomitant]
     Indication: DIABETES MELLITUS
     Dosage: 20 IU, 1X/DAY

REACTIONS (5)
  - Intentional drug misuse [Unknown]
  - Pain in extremity [Unknown]
  - Sensory loss [Unknown]
  - Hypoaesthesia [Unknown]
  - Pain [Unknown]
